FAERS Safety Report 13135807 (Version 1)
Quarter: 2017Q1

REPORT INFORMATION
  Report Type: Spontaneous
  Country: US (occurrence: US)
  Receive Date: 20170120
  Receipt Date: 20170120
  Transmission Date: 20170428
  Serious: Yes (Death)
  Sender: FDA-Public Use
  Company Number: US-ACTELION-A-NJ2017-148578

PATIENT
  Age: 58 Year
  Sex: Female

DRUGS (1)
  1. VELETRI [Suspect]
     Active Substance: EPOPROSTENOL
     Indication: PULMONARY HYPERTENSION
     Dosage: 7.5 NG/KG, PER MIN
     Route: 042
     Dates: start: 20170111, end: 20170114

REACTIONS (1)
  - Death [Fatal]

NARRATIVE: CASE EVENT DATE: 20170114
